FAERS Safety Report 6492903-1 (Version None)
Quarter: 2009Q4

REPORT INFORMATION
  Report Type: 
  Country: None (occurrence: None)
  Receive Date: 20091214
  Receipt Date: 20091203
  Transmission Date: 20100525
  Serious: Yes (Hospitalization, Other)
  Sender: FDA-Public Use
  Company Number: PHHY2009JP43597

PATIENT
  Sex: Female
  Weight: 54 kg

DRUGS (2)
  1. DIOVAN HCT [Suspect]
     Indication: HYPERTENSION
     Dosage: 1 DF, QD
     Route: 048
     Dates: end: 20091003
  2. DIOVAN HCT [Suspect]
     Dosage: 1 DF, QD
     Route: 048
     Dates: start: 20091005, end: 20091007

REACTIONS (5)
  - ABDOMINAL PAIN [None]
  - BLOOD POTASSIUM DECREASED [None]
  - CHOLELITHIASIS [None]
  - PANCREATITIS ACUTE [None]
  - SURGERY [None]
